FAERS Safety Report 5525580-4 (Version None)
Quarter: 2008Q1

REPORT INFORMATION
  Report Type: 
  Country: None (occurrence: None)
  Receive Date: 20071126
  Receipt Date: 20071116
  Transmission Date: 20080703
  Serious: Yes (Death, Hospitalization)
  Sender: FDA-Public Use
  Company Number: B0496712A

PATIENT
  Age: 48 Year
  Sex: Male

DRUGS (13)
  1. ARIXTRA [Suspect]
     Indication: DEEP VEIN THROMBOSIS
     Dosage: 7.5MG PER DAY
     Route: 058
     Dates: end: 20071006
  2. ULTIVA [Suspect]
     Indication: DRUG USE FOR UNKNOWN INDICATION
     Dates: end: 20071010
  3. HEPARIN [Suspect]
     Indication: DIALYSIS
     Dates: start: 20071006, end: 20071008
  4. ORGARAN [Suspect]
     Route: 058
     Dates: start: 20071008, end: 20071010
  5. LASIX [Suspect]
     Dates: end: 20071010
  6. MIDAZOLAM HCL [Suspect]
     Dates: end: 20071010
  7. OMEPRAZOLE [Suspect]
     Dates: end: 20071009
  8. NICARDIPINE HCL [Suspect]
     Dates: end: 20071009
  9. CLAFORAN [Suspect]
     Indication: INFECTION
     Dates: end: 20071008
  10. FLUMAZENIL [Suspect]
     Dates: start: 20071010, end: 20071010
  11. AMIKACIN [Concomitant]
     Indication: INFECTION
  12. TAZOCILLINE [Concomitant]
     Indication: INFECTION
  13. CIPROFLOXACIN HCL [Concomitant]
     Indication: INFECTION

REACTIONS (9)
  - ANURIA [None]
  - CEREBRAL HAEMORRHAGE [None]
  - CEREBRAL ISCHAEMIA [None]
  - COMA [None]
  - DEHYDRATION [None]
  - MYDRIASIS [None]
  - RENAL TUBULAR NECROSIS [None]
  - SEPSIS [None]
  - THROMBOCYTOPENIA [None]
